FAERS Safety Report 9981427 (Version 1)
Quarter: 2014Q1

REPORT INFORMATION
  Report Type: Spontaneous
  Country: US (occurrence: None)
  Receive Date: 20140306
  Receipt Date: 20140306
  Transmission Date: 20141002
  Serious: Yes (Life-Threatening, Other)
  Sender: FDA-Public Use
  Company Number: None

PATIENT
  Age: 72 Year
  Sex: Male
  Weight: 83.92 kg

DRUGS (1)
  1. VALSARTAN/HCTZ [Suspect]
     Indication: HYPERTENSION
     Dosage: 1 TAB ONCE DAILY TAKEN BY MOUTH
     Route: 048
     Dates: start: 20140225, end: 20140227

REACTIONS (3)
  - Blood pressure increased [None]
  - Product quality issue [None]
  - Product formulation issue [None]
